FAERS Safety Report 25623355 (Version 1)
Quarter: 2025Q3

REPORT INFORMATION
  Report Type: Spontaneous
  Country: US (occurrence: US)
  Receive Date: 20250730
  Receipt Date: 20250730
  Transmission Date: 20251021
  Serious: No
  Sender: AMGEN
  Company Number: US-AMGEN-USASP2025149072

PATIENT
  Sex: Female

DRUGS (1)
  1. UPLIZNA [Suspect]
     Active Substance: INEBILIZUMAB-CDON
     Indication: Product used for unknown indication
     Route: 040

REACTIONS (1)
  - Migraine [Unknown]
